FAERS Safety Report 6879686-8 (Version None)
Quarter: 2010Q3

REPORT INFORMATION
  Report Type: 
  Country: None (occurrence: None)
  Receive Date: 20100728
  Receipt Date: 20100715
  Transmission Date: 20110219
  Serious: Yes (Other)
  Sender: FDA-Public Use
  Company Number: US-ELI_LILLY_AND_COMPANY-US201006003579

PATIENT
  Age: 74 Year
  Sex: Male
  Weight: 86.621 kg

DRUGS (9)
  1. FORTEO [Suspect]
     Indication: OSTEOPOROSIS
     Dosage: 20 UG, DAILY (1/D)
     Dates: start: 20100505
  2. METHOTREXATE [Concomitant]
  3. CARBIDOPA AND LEVODOPA [Concomitant]
  4. ASPIRIN [Concomitant]
  5. CLONAZEPAM [Concomitant]
  6. URSODIOL [Concomitant]
  7. ZETIA [Concomitant]
  8. FOLIC ACID [Concomitant]
  9. VITAMIN D [Concomitant]

REACTIONS (1)
  - BLOOD ALKALINE PHOSPHATASE INCREASED [None]
